FAERS Safety Report 8435951-4 (Version None)
Quarter: 2012Q2

REPORT INFORMATION
  Report Type: 
  Country: None (occurrence: None)
  Receive Date: 20120614
  Receipt Date: 20120611
  Transmission Date: 20120825
  Serious: Yes (Other)
  Sender: FDA-Public Use
  Company Number: US-ROCHE-1075757

PATIENT
  Age: 49 Year
  Sex: Female
  Weight: 45.4 kg

DRUGS (3)
  1. ACTEMRA [Suspect]
     Indication: RHEUMATOID ARTHRITIS
     Dosage: DOSE 411
     Route: 042
     Dates: start: 20120323
  2. ACTEMRA [Suspect]
     Dosage: DOSE 411
     Dates: start: 20120420
  3. ACTEMRA [Suspect]
     Dosage: DOSE 800
     Dates: start: 20120518

REACTIONS (1)
  - CARDIAC FAILURE [None]
